FAERS Safety Report 5345969-6 (Version None)
Quarter: 2007Q2

REPORT INFORMATION
  Report Type: 
  Country: None (occurrence: None)
  Receive Date: 20070605
  Receipt Date: 20070524
  Transmission Date: 20071010
  Serious: Yes (Death)
  Sender: FDA-Public Use
  Company Number: FR-ROCHE-487351

PATIENT
  Age: 68 Year
  Sex: Male

DRUGS (2)
  1. GANCICLOVIR SODIUM [Suspect]
     Indication: GLIOMA
     Route: 042
     Dates: start: 20061112, end: 20061125
  2. CEREPRO [Suspect]
     Indication: GLIOMA
     Dosage: FORM = INJECTION
     Route: 018
     Dates: start: 20061106, end: 20061106

REACTIONS (1)
  - STATUS EPILEPTICUS [None]
